FAERS Safety Report 7734044-9 (Version None)
Quarter: 2011Q3

REPORT INFORMATION
  Report Type: 
  Country: None (occurrence: None)
  Receive Date: 20110907
  Receipt Date: 20110830
  Transmission Date: 20111222
  Serious: Yes (Other)
  Sender: FDA-Public Use
  Company Number: CL-ROCHE-799895

PATIENT
  Sex: Female
  Weight: 65 kg

DRUGS (5)
  1. CAPECITABINE [Suspect]
     Indication: COLON CANCER
     Route: 048
     Dates: start: 20110517, end: 20110811
  2. OXALIPLATIN [Suspect]
     Indication: COLON CANCER
     Route: 042
     Dates: end: 20110811
  3. ENALAPRIL MALEATE [Concomitant]
     Indication: HYPERTENSION
     Dosage: FREQUENCY: 10 MILLIGRAMS IN THE MORNING AND 10 MILLIGRAMS AT NIGHT
     Route: 048
     Dates: start: 20070830
  4. BETAMETHASONE [Concomitant]
     Route: 048
  5. SINTROM [Concomitant]
     Indication: THROMBOSIS
     Dosage: FREQUENCY REPORTED AS 'DEPENDS ON INR'
     Route: 048

REACTIONS (1)
  - BRONCHOSPASM [None]
